FAERS Safety Report 13363521 (Version 1)
Quarter: 2017Q1

REPORT INFORMATION
  Report Type: Spontaneous
  Country: CZ (occurrence: CZ)
  Receive Date: 20170323
  Receipt Date: 20170323
  Transmission Date: 20170429
  Serious: Yes (Other)
  Sender: FDA-Public Use
  Company Number: CZ-009507513-1703CZE007384

PATIENT
  Age: 67 Year
  Sex: Female

DRUGS (9)
  1. CHONDROSULF [Concomitant]
     Active Substance: CHONDROITIN SULFATE (CHICKEN)
  2. RHEFLUIN [Concomitant]
  3. CARDILAN (NICOFURANOSE) [Concomitant]
  4. ANOPYRIN [Concomitant]
     Active Substance: ASPIRIN
  5. TULIP (ATORVASTATIN CALCIUM) [Concomitant]
     Active Substance: ATORVASTATIN
  6. KEYTRUDA [Suspect]
     Active Substance: PEMBROLIZUMAB
     Dosage: 2 MG/KG, Q3W
     Route: 042
     Dates: start: 20170119
  7. BETALOC [Concomitant]
     Active Substance: METOPROLOL TARTRATE
  8. KEYTRUDA [Suspect]
     Active Substance: PEMBROLIZUMAB
     Indication: MALIGNANT MELANOMA
     Dosage: 2 MG/KG, Q3W
     Route: 042
     Dates: start: 20141217, end: 20161031
  9. MONOPRIL [Concomitant]
     Active Substance: FOSINOPRIL SODIUM

REACTIONS (6)
  - Weight decreased [Unknown]
  - Eyelid rash [Unknown]
  - Vitiligo [Unknown]
  - Gastric ulcer [Recovering/Resolving]
  - Arthralgia [Unknown]
  - Fatigue [Unknown]

NARRATIVE: CASE EVENT DATE: 20150119
